FAERS Safety Report 15027061 (Version 1)
Quarter: 2018Q2

REPORT INFORMATION
  Report Type: Spontaneous
  Country: JP (occurrence: JP)
  Receive Date: 20180619
  Receipt Date: 20180619
  Transmission Date: 20180711
  Serious: Yes (Death)
  Sender: FDA-Public Use
  Company Number: JP-TEVA-2018-JP-909374

PATIENT
  Age: 73 Year
  Sex: Male

DRUGS (6)
  1. PREDNISOLONE. [Suspect]
     Active Substance: PREDNISOLONE
     Dosage: 10 MILLIGRAM DAILY;
     Route: 065
     Dates: start: 2015
  2. PREDNISOLONE. [Suspect]
     Active Substance: PREDNISOLONE
     Dosage: 5 MILLIGRAM DAILY;
     Route: 065
     Dates: start: 2015
  3. PREDNISOLONE. [Suspect]
     Active Substance: PREDNISOLONE
     Dosage: 50 MILLIGRAM DAILY;
     Route: 065
     Dates: start: 2015
  4. RUXOLITINIB [Suspect]
     Active Substance: RUXOLITINIB
     Dosage: 50 MILLIGRAM DAILY;
     Route: 065
     Dates: start: 2015
  5. RUXOLITINIB [Suspect]
     Active Substance: RUXOLITINIB
     Indication: PRIMARY MYELOFIBROSIS
     Dosage: 40 MILLIGRAM DAILY;
     Route: 065
     Dates: start: 2015
  6. PREDNISOLONE. [Suspect]
     Active Substance: PREDNISOLONE
     Indication: PRIMARY MYELOFIBROSIS
     Dosage: 15 MILLIGRAM DAILY;
     Route: 065
     Dates: start: 2015

REACTIONS (4)
  - Acute respiratory failure [Fatal]
  - Tuberculosis [Fatal]
  - Disseminated tuberculosis [Fatal]
  - Pulmonary tuberculosis [Fatal]

NARRATIVE: CASE EVENT DATE: 2015
